FAERS Safety Report 20582481 (Version 1)
Quarter: 2022Q1

REPORT INFORMATION
  Report Type: Spontaneous
  Country: GB (occurrence: None)
  Receive Date: 20220311
  Receipt Date: 20220311
  Transmission Date: 20220423
  Serious: Yes (Other)
  Sender: FDA-Public Use
  Company Number: GB-MHRA-MED-202202241549387050-HYKSC

PATIENT
  Sex: Female

DRUGS (1)
  1. CARBOPLATIN [Suspect]
     Active Substance: CARBOPLATIN
     Indication: Product used for unknown indication
     Dosage: 500
     Route: 065
     Dates: start: 20220223, end: 20220224

REACTIONS (8)
  - Dyspnoea [Recovered/Resolved]
  - Hyperhidrosis [Unknown]
  - Chest discomfort [Unknown]
  - Speech disorder [Unknown]
  - Cyanosis [Unknown]
  - Blood pressure immeasurable [Unknown]
  - Oxygen saturation decreased [Unknown]
  - Tachycardia [Unknown]

NARRATIVE: CASE EVENT DATE: 20220224
